FAERS Safety Report 6312826-8 (Version None)
Quarter: 2009Q3

REPORT INFORMATION
  Report Type: 
  Country: None (occurrence: None)
  Receive Date: 20090818
  Receipt Date: 20090807
  Transmission Date: 20100115
  Serious: Yes (Other)
  Sender: FDA-Public Use
  Company Number: US-BAYER-200920937NA

PATIENT
  Age: 31 Year
  Sex: Female
  Weight: 98 kg

DRUGS (2)
  1. MIRENA [Suspect]
     Indication: CONTRACEPTION
     Route: 015
     Dates: start: 20080307
  2. ADIPEX [Concomitant]
     Route: 051

REACTIONS (5)
  - BACK PAIN [None]
  - BREAST TENDERNESS [None]
  - INTRA-UTERINE DEATH [None]
  - IUCD COMPLICATION [None]
  - PREGNANCY WITH CONTRACEPTIVE DEVICE [None]
